FAERS Safety Report 18238746 (Version 1)
Quarter: 2020Q3

REPORT INFORMATION
  Report Type: Spontaneous
  Country: CH (occurrence: CH)
  Receive Date: 20200907
  Receipt Date: 20200907
  Transmission Date: 20201103
  Serious: Yes (Other)
  Sender: FDA-Public Use
  Company Number: CH-PFIZER INC-2020336919

PATIENT
  Age: 48 Year
  Sex: Male
  Weight: 72 kg

DRUGS (16)
  1. CEFTRIAXONE. [Suspect]
     Active Substance: CEFTRIAXONE
     Indication: PNEUMONIA
     Dosage: 2 G, 1X/DAY
     Route: 042
     Dates: start: 20200323, end: 20200326
  2. PLAQUENIL [Suspect]
     Active Substance: HYDROXYCHLOROQUINE SULFATE
     Indication: COVID-19
     Dosage: 200 MG, 2X/DAY (400 MG 2X / D ON 23 AND 24.03.2020 THEN 200 MG 2X / D)
     Route: 048
     Dates: start: 20200323, end: 20200327
  3. PROPOFOL. [Suspect]
     Active Substance: PROPOFOL
     Dosage: UNK  (DOSAGE VARIABLES)
     Dates: start: 20200324, end: 20200406
  4. REYATAZ [Suspect]
     Active Substance: ATAZANAVIR SULFATE
     Indication: COVID-19
     Dosage: 400 MG, 1X/DAY
     Route: 048
     Dates: start: 20200322, end: 20200329
  5. FENTANYL. [Suspect]
     Active Substance: FENTANYL
     Dosage: UNK  (DOSAGE VARIABLES)
     Dates: start: 20200324, end: 20200406
  6. ROCURONIUM [Suspect]
     Active Substance: ROCURONIUM BROMIDE
     Dosage: UNK  (DOSAGE VARIABLES)
     Dates: start: 20200324, end: 20200406
  7. TARIVID [OFLOXACIN] [Suspect]
     Active Substance: OFLOXACIN
     Indication: PYREXIA
     Dosage: UNK
     Route: 048
     Dates: start: 20200318, end: 20200321
  8. AUGMENTIN [Suspect]
     Active Substance: AMOXICILLIN\CLAVULANATE POTASSIUM
     Indication: PYREXIA
     Dosage: UNK
     Route: 048
     Dates: start: 20200318, end: 20200321
  9. CLEXANE [Suspect]
     Active Substance: ENOXAPARIN SODIUM
     Dosage: 40 MG, 1X/DAY
     Route: 058
     Dates: start: 20200323, end: 20200402
  10. TAZOBAC [Suspect]
     Active Substance: PIPERACILLIN SODIUM\TAZOBACTAM SODIUM
     Indication: PNEUMONIA
     Dosage: 4500 MG, 2X/DAY
     Route: 042
     Dates: start: 20200321, end: 20200323
  11. SUPRACYCLIN [DOXYCYCLINE MONOHYDRATE] [Suspect]
     Active Substance: DOXYCYCLINE
     Indication: PNEUMONIA
     Dosage: 1 DF, 1X/DAY
     Route: 048
     Dates: start: 20200330, end: 20200402
  12. DAFALGAN [Suspect]
     Active Substance: ACETAMINOPHEN
     Indication: PYREXIA
     Dosage: 500 MG, AS NEEDED (500 MG (1 TO 4X / DAY IF NECESSARY)
     Route: 048
     Dates: start: 202003
  13. CEFEPIME [Suspect]
     Active Substance: CEFEPIME HYDROCHLORIDE
     Indication: PNEUMONIA
     Dosage: 2 G, 3X/DAY
     Route: 042
     Dates: start: 20200327, end: 20200402
  14. MIDAZOLAM. [Suspect]
     Active Substance: MIDAZOLAM
     Dosage: UNK (DOSAGE VARIABLES)
     Dates: start: 20200324, end: 20200406
  15. PARACETAMOL [Suspect]
     Active Substance: ACETAMINOPHEN
     Dosage: 1500?2000 MG, DAILY
     Dates: start: 20200322, end: 20200325
  16. PARACETAMOL [Suspect]
     Active Substance: ACETAMINOPHEN
     Dosage: 1000 MG, DAILY
     Dates: start: 20200328, end: 20200402

REACTIONS (4)
  - Electrocardiogram T wave inversion [Unknown]
  - Hepatic enzyme increased [Recovering/Resolving]
  - Hyperbilirubinaemia [Recovering/Resolving]
  - Jaundice [Recovering/Resolving]

NARRATIVE: CASE EVENT DATE: 202003
